FAERS Safety Report 25074389 (Version 1)
Quarter: 2025Q1

REPORT INFORMATION
  Report Type: Other
  Country: MX (occurrence: MX)
  Receive Date: 20250313
  Receipt Date: 20250313
  Transmission Date: 20250409
  Serious: Yes (Death)
  Sender: ANI
  Company Number: MX-ANIPHARMA-015976

PATIENT
  Age: 78 Year
  Sex: Female

DRUGS (2)
  1. FLUCONAZOLE [Suspect]
     Active Substance: FLUCONAZOLE
     Indication: Fusarium infection
  2. ANIDULAFUNGIN [Concomitant]
     Active Substance: ANIDULAFUNGIN
     Indication: Fusarium infection

REACTIONS (1)
  - Drug ineffective [Fatal]
